FAERS Safety Report 24609629 (Version 2)
Quarter: 2024Q4

REPORT INFORMATION
  Report Type: Spontaneous
  Country: CN (occurrence: CN)
  Receive Date: 20241112
  Receipt Date: 20241114
  Transmission Date: 20250114
  Serious: Yes (Hospitalization)
  Sender: NOVARTIS
  Company Number: CN-002147023-NVSC2024CN216445

PATIENT
  Age: 35 Year
  Sex: Male

DRUGS (2)
  1. DABRAFENIB [Suspect]
     Active Substance: DABRAFENIB
     Indication: Synovial sarcoma
     Dosage: 150 MG, BID
     Route: 048
     Dates: start: 20240527, end: 20240624
  2. TRAMETINIB [Suspect]
     Active Substance: TRAMETINIB
     Indication: Synovial sarcoma
     Dosage: 2 MG, QD
     Route: 048
     Dates: start: 20240527, end: 20240624

REACTIONS (5)
  - Haematuria [Not Recovered/Not Resolved]
  - Pollakiuria [Unknown]
  - Dysuria [Unknown]
  - Bladder disorder [Unknown]
  - Purulence [Unknown]

NARRATIVE: CASE EVENT DATE: 20240607
